FAERS Safety Report 4706832-4 (Version None)
Quarter: 2005Q3

REPORT INFORMATION
  Report Type: 
  Country: None (occurrence: None)
  Receive Date: 20050705
  Receipt Date: 20041110
  Transmission Date: 20060218
  Serious: Yes (Death, Hospitalization, Other)
  Sender: FDA-Public Use
  Company Number: HQ3958426AUG2002

PATIENT
  Age: 39 Year
  Sex: Male
  Weight: 63.1 kg

DRUGS (3)
  1. MYLOTARG [Suspect]
     Indication: ACUTE MYELOID LEUKAEMIA
     Dosage: 4 MG/M^2 1X PER 1 DAY, INTRAVENOUS
     Route: 042
     Dates: start: 20010706, end: 20010706
  2. MYLOTARG [Suspect]
     Indication: ACUTE MYELOID LEUKAEMIA
     Dosage: 4 MG/M^2 1X PER 1 DAY, INTRAVENOUS
     Route: 042
     Dates: start: 20010720, end: 20010720
  3. MYLOTARG [Suspect]
     Indication: ACUTE MYELOID LEUKAEMIA
     Dosage: 4 MG/M^2 1X PER 1 DAY, INTRAVENOUS
     Route: 042
     Dates: start: 20010724, end: 20010724

REACTIONS (5)
  - DISEASE RECURRENCE [None]
  - FATIGUE [None]
  - FUNGAEMIA [None]
  - GENERAL PHYSICAL HEALTH DETERIORATION [None]
  - PYREXIA [None]
